FAERS Safety Report 6394954-4 (Version None)
Quarter: 2009Q4

REPORT INFORMATION
  Report Type: 
  Country: None (occurrence: None)
  Receive Date: 20091009
  Receipt Date: 20090928
  Transmission Date: 20100525
  Serious: Yes (Hospitalization)
  Sender: FDA-Public Use
  Company Number: FR-PFIZER INC-2009274648

PATIENT
  Age: 51 Year

DRUGS (6)
  1. TAHOR [Suspect]
     Indication: HYPERCHOLESTEROLAEMIA
     Dosage: UNK
     Route: 048
     Dates: start: 20090721
  2. CORDARONE [Suspect]
     Indication: ARRHYTHMIA PROPHYLAXIS
     Dosage: 200 MG, 5 OUT OF 7 DAYS
     Route: 048
     Dates: start: 20090724
  3. NEXIUM [Suspect]
     Indication: PROPHYLAXIS AGAINST GASTROINTESTINAL ULCER
     Dosage: 20 MG, DAILY
     Route: 048
     Dates: start: 20090708
  4. KARDEGIC [Suspect]
     Indication: ISCHAEMIC HEART DISEASE PROPHYLAXIS
     Dosage: 75 MG, DAILY
     Route: 048
     Dates: start: 20090707
  5. HEPARIN CALCIUM ^DAKOTA PHARM^ [Suspect]
     Indication: MYOCARDIAL INFARCTION
     Dosage: 200 MG, DAILY
     Route: 042
     Dates: start: 20090707, end: 20090908
  6. ORACILLINE [Concomitant]
     Indication: ANTIBIOTIC PROPHYLAXIS
     Dosage: 2 MILLIONIU, 2X/DAY
     Route: 048
     Dates: start: 20090819

REACTIONS (1)
  - EOSINOPHILIA [None]
